FAERS Safety Report 24869611 (Version 1)
Quarter: 2025Q1

REPORT INFORMATION
  Report Type: Spontaneous
  Country: US (occurrence: US)
  Receive Date: 20250121
  Receipt Date: 20250121
  Transmission Date: 20250409
  Serious: Yes (Death, Other)
  Sender: PFIZER
  Company Number: US-PFIZER INC-202500012903

PATIENT
  Age: 11 Month
  Sex: Female

DRUGS (2)
  1. FENTANYL CITRATE [Suspect]
     Active Substance: FENTANYL CITRATE
     Route: 065
  2. XYLAZINE [Suspect]
     Active Substance: XYLAZINE
     Route: 065

REACTIONS (3)
  - Accidental exposure to product [Fatal]
  - Cardiac arrest [Fatal]
  - Respiratory arrest [Fatal]

NARRATIVE: CASE EVENT DATE: 20230101
